FAERS Safety Report 16451754 (Version 1)
Quarter: 2019Q2

REPORT INFORMATION
  Report Type: Report from Study
  Country: DE (occurrence: DE)
  Receive Date: 20190619
  Receipt Date: 20190619
  Transmission Date: 20190711
  Serious: Yes (Other)
  Sender: FDA-Public Use
  Company Number: DE-PFIZER INC-2018155352

PATIENT
  Age: 77 Year
  Sex: Male
  Weight: 70 kg

DRUGS (19)
  1. FLUOROURACIL. [Suspect]
     Active Substance: FLUOROURACIL
     Dosage: 700 MG, UNK
     Route: 040
     Dates: start: 20180526
  2. FLUOROURACIL. [Suspect]
     Active Substance: FLUOROURACIL
     Dosage: 1000 MG, UNK
     Route: 042
     Dates: start: 20180426
  3. FLUOROURACIL. [Suspect]
     Active Substance: FLUOROURACIL
     Dosage: 1040 MG, UNK
     Route: 042
     Dates: start: 20180315
  4. VECTIBIX [Suspect]
     Active Substance: PANITUMUMAB
     Indication: COLORECTAL CANCER METASTATIC
     Dosage: 420 MG, UNK
     Route: 042
     Dates: start: 20180109
  5. PLIAZON [PHYTOMENADIONE;UREA] [Concomitant]
     Indication: RASH
     Dosage: 100 UNK, UNK
     Route: 062
     Dates: start: 20180108
  6. VECTIBIX [Suspect]
     Active Substance: PANITUMUMAB
     Dosage: 305 MG, UNK
     Route: 042
     Dates: start: 20180906
  7. IRINOTECAN HCL [Suspect]
     Active Substance: IRINOTECAN HYDROCHLORIDE
     Indication: COLORECTAL CANCER METASTATIC
     Dosage: 330 MG, UNK
     Route: 065
     Dates: start: 20180109
  8. FLUOROURACIL. [Suspect]
     Active Substance: FLUOROURACIL
     Dosage: 700 MG, UNK
     Route: 040
     Dates: start: 20180315
  9. VECTIBIX [Suspect]
     Active Substance: PANITUMUMAB
     Dosage: 315 MG, UNK
     Route: 042
     Dates: start: 20180526
  10. VECTIBIX [Suspect]
     Active Substance: PANITUMUMAB
     Dosage: 315 MG, UNK
     Route: 042
     Dates: start: 20180315
  11. IRINOTECAN HCL [Suspect]
     Active Substance: IRINOTECAN HYDROCHLORIDE
     Dosage: 300 MG, UNK
     Dates: start: 20180426
  12. FLUOROURACIL. [Suspect]
     Active Substance: FLUOROURACIL
     Indication: COLORECTAL CANCER METASTATIC
     Dosage: 730 MG, UNK
     Route: 040
     Dates: start: 20180109
  13. FLUOROURACIL. [Suspect]
     Active Substance: FLUOROURACIL
     Dosage: 680 MG, UNK
     Route: 040
     Dates: start: 20180906
  14. FLUOROURACIL. [Suspect]
     Active Substance: FLUOROURACIL
     Dosage: 670 MG, UNK
     Route: 040
     Dates: start: 20180426
  15. FLUOROURACIL. [Suspect]
     Active Substance: FLUOROURACIL
     Dosage: 1040 MG, UNK
     Route: 042
     Dates: start: 20180526
  16. IRINOTECAN HCL [Suspect]
     Active Substance: IRINOTECAN HYDROCHLORIDE
     Dosage: 310 MG, UNK
     Dates: start: 20180315
  17. FLUOROURACIL. [Suspect]
     Active Substance: FLUOROURACIL
     Dosage: 1090 MG, UNK
     Route: 042
     Dates: start: 20180109
  18. FLUOROURACIL. [Suspect]
     Active Substance: FLUOROURACIL
     Dosage: 340 MG, UNK
     Route: 042
     Dates: start: 20180906
  19. VECTIBIX [Suspect]
     Active Substance: PANITUMUMAB
     Dosage: 285 MG, UNK
     Route: 042
     Dates: start: 20180426

REACTIONS (2)
  - Dermatitis [Recovering/Resolving]
  - Rash [Recovering/Resolving]

NARRATIVE: CASE EVENT DATE: 20180109
